FAERS Safety Report 5474345-0 (Version None)
Quarter: 2007Q4

REPORT INFORMATION
  Report Type: 
  Country: None (occurrence: None)
  Receive Date: 20071002
  Receipt Date: 20070924
  Transmission Date: 20080405
  Serious: Yes (Other)
  Sender: FDA-Public Use
  Company Number: PHBS2007CL15998

PATIENT
  Age: 70 Year
  Sex: Female

DRUGS (4)
  1. ZOLEDRONIC ACID [Suspect]
     Indication: MULTIPLE MYELOMA
     Dosage: 4 MG, QMO
     Route: 042
  2. GLYBURIDE [Concomitant]
     Indication: TYPE 2 DIABETES MELLITUS
     Dosage: 10 MG, BID
  3. ENALAPRIL MALEATE [Concomitant]
     Indication: HYPERTENSION
     Dosage: 10 MG, BID
  4. VINCRISTINE + ADRIAMYCIN + DEXAMETHASONE [Concomitant]
     Indication: MULTIPLE MYELOMA

REACTIONS (6)
  - BONE DEBRIDEMENT [None]
  - BONE DISORDER [None]
  - EDENTULOUS [None]
  - MAXILLOFACIAL OPERATION [None]
  - OSTEONECROSIS [None]
  - TOOTH LOSS [None]
